FAERS Safety Report 4350993-6 (Version None)
Quarter: 2004Q2

REPORT INFORMATION
  Report Type: 
  Country: None (occurrence: None)
  Receive Date: 20040427
  Receipt Date: 20040421
  Transmission Date: 20050107
  Serious: Yes (Hospitalization)
  Sender: FDA-Public Use
  Company Number: NLWYE716221APR04

PATIENT
  Sex: Male

DRUGS (2)
  1. EFFEXOR [Suspect]
     Dosage: 37.5 MG 7X PER 1 DAY ORAL
     Route: 048
     Dates: start: 20040318, end: 20040318
  2. ALEVE [Suspect]
     Dosage: 220 MG 10X PER 1 DAY ORAL
     Route: 048
     Dates: start: 20040318, end: 20040318

REACTIONS (6)
  - CONVULSION [None]
  - HYPERVENTILATION [None]
  - INTENTIONAL OVERDOSE [None]
  - MULTIPLE DRUG OVERDOSE [None]
  - MUSCLE CRAMP [None]
  - TACHYPNOEA [None]
